FAERS Safety Report 4535126-5 (Version None)
Quarter: 2004Q4

REPORT INFORMATION
  Report Type: 
  Country: None (occurrence: None)
  Receive Date: 20041222
  Receipt Date: 20041213
  Transmission Date: 20050328
  Serious: Yes (Hospitalization)
  Sender: FDA-Public Use
  Company Number: FRWYE279413DEC04

PATIENT
  Age: 66 Year
  Sex: Female

DRUGS (3)
  1. ENBREL [Suspect]
     Indication: RHEUMATOID ARTHRITIS
     Route: 058
     Dates: start: 20030203, end: 20040716
  2. ENBREL [Suspect]
     Route: 058
     Dates: start: 20040101, end: 20040716
  3. PREDNISOLONE [Suspect]
     Indication: RHEUMATOID ARTHRITIS
     Route: 048
     Dates: start: 20000606

REACTIONS (2)
  - PLEURISY [None]
  - STAPHYLOCOCCAL INFECTION [None]
